FAERS Safety Report 5367077-0 (Version None)
Quarter: 2007Q2

REPORT INFORMATION
  Report Type: 
  Country: None (occurrence: None)
  Receive Date: 20070622
  Receipt Date: 20070615
  Transmission Date: 20071010
  Serious: Yes (Other)
  Sender: FDA-Public Use
  Company Number: B0476128A

PATIENT
  Age: 66 Year
  Sex: Female

DRUGS (3)
  1. AUGMENTIN '125' [Suspect]
     Indication: SINUSITIS
     Route: 048
     Dates: start: 20070122, end: 20070201
  2. EVISTA [Concomitant]
     Indication: DRUG USE FOR UNKNOWN INDICATION
     Route: 065
  3. SEMPREX [Concomitant]
     Indication: DRUG USE FOR UNKNOWN INDICATION
     Route: 048

REACTIONS (7)
  - BLOOD BILIRUBIN INCREASED [None]
  - CHROMATURIA [None]
  - FATIGUE [None]
  - HEPATITIS CHOLESTATIC [None]
  - JAUNDICE [None]
  - OCULAR ICTERUS [None]
  - PRURITUS [None]
